FAERS Safety Report 22184670 (Version 2)
Quarter: 2023Q2

REPORT INFORMATION
  Report Type: Report from Study
  Country: HU (occurrence: HU)
  Receive Date: 20230407
  Receipt Date: 20230510
  Transmission Date: 20230722
  Serious: Yes (Hospitalization)
  Sender: FDA-Public Use
  Company Number: HU-ABBVIE-4719501

PATIENT
  Sex: Female

DRUGS (8)
  1. CARBIDOPA\LEVODOPA [Suspect]
     Active Substance: CARBIDOPA\LEVODOPA
     Indication: Parkinson^s disease
     Dosage: MORNING DOSE: 4.2 ML; CONTINUOUS DOSE: 2.4 ML/HOUR; EXTRA DOSE: 1.2 ML
     Route: 050
     Dates: start: 20221109, end: 20230331
  2. CARBIDOPA\LEVODOPA [Suspect]
     Active Substance: CARBIDOPA\LEVODOPA
  3. CLONAZEPAM [Concomitant]
     Active Substance: CLONAZEPAM
     Indication: Panic disorder
     Dosage: FORM STRENGTH: 0.5MG, MORNING: HALF TABLET; EVENING: HALF TABLET
     Route: 048
  4. PRETANIX [Concomitant]
     Indication: Hypertension
     Dosage: FORM STRENGTH: 1.5MG IN MORNING
     Route: 048
  5. TIANEPTINE SODIUM [Concomitant]
     Active Substance: TIANEPTINE SODIUM
     Indication: Depression
     Dosage: TIME INTERVAL: 0.33333333 DAYS: 37.5 MILLIGRAM
  6. BISOPROLOL FUMARATE [Concomitant]
     Active Substance: BISOPROLOL FUMARATE
     Indication: Hypertension
     Dosage: FORM STRENGTH: 5MG IN MORNING
     Route: 048
  7. TIZANIDINE [Concomitant]
     Active Substance: TIZANIDINE
     Indication: Muscle spasms
     Dosage: FORM STRENGTH: 6 MILLIGRAM IN EVENING
     Route: 048
  8. QUETIAPINE FUMARATE [Concomitant]
     Active Substance: QUETIAPINE FUMARATE
     Indication: Depression
     Dosage: TIME INTERVAL: 0.33333333 DAYS: 125 MILLIGRAM, FREQUENCY TEXT: 50 MG -25 MG -50 MG
     Route: 048

REACTIONS (2)
  - Device difficult to use [Recovered/Resolved]
  - Medical device discomfort [Recovered/Resolved]

NARRATIVE: CASE EVENT DATE: 20221109
